FAERS Safety Report 8429087-6 (Version None)
Quarter: 2012Q2

REPORT INFORMATION
  Report Type: 
  Country: None (occurrence: None)
  Receive Date: 20120605
  Receipt Date: 20120523
  Transmission Date: 20120825
  Serious: Yes (Other)
  Sender: FDA-Public Use
  Company Number: 2012MA005614

PATIENT
  Age: 63 Year
  Sex: Male

DRUGS (1)
  1. TEMAZEPAM [Suspect]
     Indication: INSOMNIA
     Dosage: 120 MG;QD;PO
     Route: 048
     Dates: start: 20120401

REACTIONS (5)
  - CAPSULE PHYSICAL ISSUE [None]
  - DRUG INEFFECTIVE [None]
  - PRODUCT QUALITY ISSUE [None]
  - INCORRECT DOSE ADMINISTERED [None]
  - PRODUCT SUBSTITUTION ISSUE [None]
